FAERS Safety Report 10233719 (Version 2)
Quarter: 2014Q2

REPORT INFORMATION
  Report Type: Spontaneous
  Country: JP (occurrence: JP)
  Receive Date: 20140612
  Receipt Date: 20140627
  Transmission Date: 20141212
  Serious: Yes (Life-Threatening, Hospitalization)
  Sender: FDA-Public Use
  Company Number: JP-BAYER-2014-084009

PATIENT
  Age: 51 Year
  Sex: Male

DRUGS (1)
  1. ACETYLSALICYLIC ACID({=100 MG) [Suspect]
     Indication: ANGINA PECTORIS
     Dosage: 100 MG, QD

REACTIONS (2)
  - Kounis syndrome [Recovered/Resolved]
  - Aspirin-exacerbated respiratory disease [Recovered/Resolved]
